FAERS Safety Report 9394052 (Version 1)
Quarter: 2013Q3

REPORT INFORMATION
  Report Type: Spontaneous
  Country: CN (occurrence: CN)
  Receive Date: 20130710
  Receipt Date: 20130710
  Transmission Date: 20140515
  Serious: Yes (Other)
  Sender: FDA-Public Use
  Company Number: CN-009507513-1307CHN004338

PATIENT
  Age: 18 Year
  Sex: Male
  Weight: 55 kg

DRUGS (1)
  1. TIENAM (IV) [Suspect]
     Indication: PNEUMONIA
     Dosage: 1 G, QD
     Route: 041
     Dates: start: 20120414, end: 20120414

REACTIONS (4)
  - Injection [Unknown]
  - Chills [Recovering/Resolving]
  - Nausea [Recovering/Resolving]
  - Vomiting [Recovering/Resolving]
